FAERS Safety Report 13013161 (Version 2)
Quarter: 2016Q4

REPORT INFORMATION
  Report Type: Spontaneous
  Country: RU (occurrence: RU)
  Receive Date: 20161209
  Receipt Date: 20161219
  Transmission Date: 20170207
  Serious: No
  Sender: FDA-Public Use
  Company Number: RU-ASTRAZENECA-2016SF28700

PATIENT
  Age: 64 Year
  Sex: Female
  Weight: 80 kg

DRUGS (7)
  1. ISOKET [Concomitant]
     Active Substance: ISOSORBIDE DINITRATE
  2. INDAPAMIDE. [Concomitant]
     Active Substance: INDAPAMIDE
  3. ATORVASTATIN [Concomitant]
     Active Substance: ATORVASTATIN
  4. BRILINTA [Suspect]
     Active Substance: TICAGRELOR
     Indication: MYOCARDIAL INFARCTION
     Route: 048
     Dates: start: 201602
  5. LORISTA [Concomitant]
     Active Substance: LOSARTAN POTASSIUM
  6. ENALAPRIL [Concomitant]
     Active Substance: ENALAPRIL
  7. THROMBO ASS [Concomitant]
     Active Substance: ASPIRIN

REACTIONS (1)
  - Blood pressure increased [Recovered/Resolved]

NARRATIVE: CASE EVENT DATE: 201611
